FAERS Safety Report 4861369-7 (Version None)
Quarter: 2005Q4

REPORT INFORMATION
  Report Type: 
  Country: None (occurrence: None)
  Receive Date: 20051129
  Receipt Date: 20050216
  Transmission Date: 20060501
  Serious: Yes (Disabling)
  Sender: FDA-Public Use
  Company Number: WAES 0502USA02219

PATIENT
  Age: 80 Year
  Sex: Female

DRUGS (2)
  1. FOSAMAX [Suspect]
     Indication: OSTEOPOROSIS
     Dosage: 70 MG WKY PO
     Route: 048
     Dates: start: 20050112
  2. DIOVAN [Concomitant]

REACTIONS (4)
  - ABDOMINAL DISTENSION [None]
  - BACK PAIN [None]
  - DYSPHAGIA [None]
  - FLATULENCE [None]
